FAERS Safety Report 7734852-4 (Version None)
Quarter: 2011Q3

REPORT INFORMATION
  Report Type: 
  Country: None (occurrence: None)
  Receive Date: 20110907
  Receipt Date: 20110825
  Transmission Date: 20111222
  Serious: Yes (Other)
  Sender: FDA-Public Use
  Company Number: US-BAYER-2011-017932

PATIENT
  Sex: Female
  Weight: 56.236 kg

DRUGS (1)
  1. MIRENA [Suspect]
     Indication: CONTRACEPTION
     Dosage: 20 ?G/D, CONT
     Route: 015
     Dates: start: 20101005, end: 20110214

REACTIONS (7)
  - FLATULENCE [None]
  - DEVICE DISLOCATION [None]
  - MEDICAL DEVICE COMPLICATION [None]
  - SCAR [None]
  - EMOTIONAL DISTRESS [None]
  - UTERINE PERFORATION [None]
  - DYSPNOEA [None]
